FAERS Safety Report 5428232-4 (Version None)
Quarter: 2007Q3

REPORT INFORMATION
  Report Type: 
  Country: None (occurrence: None)
  Receive Date: 20070828
  Receipt Date: 20070817
  Transmission Date: 20080115
  Serious: Yes (Hospitalization)
  Sender: FDA-Public Use
  Company Number: FR-PFIZER INC-2007068216

PATIENT
  Age: 4 Year
  Sex: Male

DRUGS (1)
  1. CEFPODOXIME PROXETIL SUSPENSION [Suspect]
     Route: 048
     Dates: start: 20070625, end: 20070625

REACTIONS (1)
  - ACCIDENTAL OVERDOSE [None]
